FAERS Safety Report 12680095 (Version 1)
Quarter: 2016Q3

REPORT INFORMATION
  Report Type: Spontaneous
  Country: US (occurrence: None)
  Receive Date: 20160823
  Receipt Date: 20160823
  Transmission Date: 20161109
  Serious: Yes (Hospitalization)
  Sender: FDA-Public Use
  Company Number: None

PATIENT
  Age: 20 Year
  Sex: Female

DRUGS (1)
  1. PROAIR HFA [Suspect]
     Active Substance: ALBUTEROL SULFATE
     Indication: BRONCHIECTASIS
     Route: 055
     Dates: start: 20151210

REACTIONS (2)
  - Hospitalisation [None]
  - Respiratory disorder [None]

NARRATIVE: CASE EVENT DATE: 20160806
